FAERS Safety Report 11120001 (Version 1)
Quarter: 2015Q2

REPORT INFORMATION
  Report Type: Spontaneous
  Country: GB (occurrence: GB)
  Receive Date: 20150518
  Receipt Date: 20150518
  Transmission Date: 20150821
  Serious: Yes (Other)
  Sender: FDA-Public Use
  Company Number: PHHY2015GB056937

PATIENT
  Age: 6 Year
  Sex: Female

DRUGS (2)
  1. CETIRIZINE [Concomitant]
     Active Substance: CETIRIZINE HYDROCHLORIDE
     Indication: SEASONAL ALLERGY
     Route: 048
  2. MOMETASONE [Suspect]
     Active Substance: MOMETASONE
     Indication: SEASONAL ALLERGY
     Route: 006

REACTIONS (3)
  - Wrong technique in drug usage process [Unknown]
  - Epistaxis [Unknown]
  - Nasal mucosal disorder [Unknown]
